FAERS Safety Report 5797618-0 (Version None)
Quarter: 2008Q3

REPORT INFORMATION
  Report Type: 
  Country: None (occurrence: None)
  Receive Date: 20080702
  Receipt Date: 20080514
  Transmission Date: 20090109
  Serious: No
  Sender: FDA-Public Use
  Company Number: US-BAYER-200823488NA

PATIENT
  Sex: Male

DRUGS (1)
  1. NEXAVAR [Suspect]
     Indication: HEPATIC NEOPLASM MALIGNANT
     Dates: start: 20080322, end: 20080508

REACTIONS (6)
  - ANOREXIA [None]
  - ASTHENIA [None]
  - COORDINATION ABNORMAL [None]
  - DYSGEUSIA [None]
  - NAUSEA [None]
  - RASH [None]
